FAERS Safety Report 7713627-6 (Version None)
Quarter: 2011Q3

REPORT INFORMATION
  Report Type: 
  Country: None (occurrence: None)
  Receive Date: 20110826
  Receipt Date: 20110818
  Transmission Date: 20111222
  Serious: Yes (Other)
  Sender: FDA-Public Use
  Company Number: PHHY2011DE74972

PATIENT
  Age: 72 Year
  Sex: Female

DRUGS (2)
  1. CARBOPLATIN [Suspect]
     Indication: OVARIAN CANCER
  2. TAXOL [Suspect]
     Indication: OVARIAN CANCER

REACTIONS (18)
  - SACCADIC EYE MOVEMENT [None]
  - PAIN IN EXTREMITY [None]
  - PARANEOPLASTIC CEREBELLAR DEGENERATION [None]
  - PERIPHERAL SENSORY NEUROPATHY [None]
  - HEADACHE [None]
  - CEREBELLAR SYNDROME [None]
  - EYELID PTOSIS [None]
  - HYPOREFLEXIA [None]
  - OCULAR DYSMETRIA [None]
  - DIPLOPIA [None]
  - PLEOCYTOSIS [None]
  - HYPOAESTHESIA [None]
  - CEREBELLAR ATAXIA [None]
  - PYREXIA [None]
  - NYSTAGMUS [None]
  - ABASIA [None]
  - MOTOR DYSFUNCTION [None]
  - LETHARGY [None]
